FAERS Safety Report 4441124-2 (Version None)
Quarter: 2004Q3

REPORT INFORMATION
  Report Type: 
  Country: None (occurrence: None)
  Receive Date: 20040902
  Receipt Date: 20040902
  Transmission Date: 20050211
  Serious: No
  Sender: FDA-Public Use
  Company Number: None

PATIENT
  Age: 60 Year
  Sex: Female

DRUGS (1)
  1. SINGULAIR [Suspect]
     Indication: ASTHMA
     Dosage: ONCE DAILY PO
     Route: 048
     Dates: start: 19980801

REACTIONS (3)
  - GLOSSITIS [None]
  - LICHEN PLANUS [None]
  - STOMATITIS [None]
